FAERS Safety Report 5621215-0 (Version None)
Quarter: 2008Q1

REPORT INFORMATION
  Report Type: 
  Country: None (occurrence: None)
  Receive Date: 20080114
  Receipt Date: 20061207
  Transmission Date: 20080703
  Serious: Yes (Hospitalization)
  Sender: FDA-Public Use
  Company Number: A03200607731

PATIENT
  Age: 89 Year
  Sex: Male

DRUGS (2)
  1. PLAVIX [Suspect]
     Indication: CEREBROVASCULAR ACCIDENT
     Dosage: ORAL
     Route: 048
     Dates: start: 20040101, end: 20060101
  2. ACETYLSALICYLIC ACID SRT [Concomitant]

REACTIONS (1)
  - TRANSIENT ISCHAEMIC ATTACK [None]
